FAERS Safety Report 9759813 (Version 2)
Quarter: 2013Q4

REPORT INFORMATION
  Report Type: Report from Study
  Country: JP (occurrence: JP)
  Receive Date: 20131216
  Receipt Date: 20131216
  Transmission Date: 20140711
  Serious: Yes (Hospitalization)
  Sender: FDA-Public Use
  Company Number: JP-PFIZER INC-2012144291

PATIENT
  Age: 66 Year
  Sex: Female
  Weight: 45.4 kg

DRUGS (8)
  1. TOFACITINIB CITRATE [Suspect]
     Indication: RHEUMATOID ARTHRITIS
     Dosage: 5 MG, 2X/DAY
     Route: 048
     Dates: start: 20091103, end: 20120614
  2. CELECOX [Suspect]
     Indication: RHEUMATOID ARTHRITIS
     Dosage: 200 MG, 2X/DAY
     Route: 048
     Dates: start: 20090321
  3. PREDNISOLONE [Suspect]
     Indication: RHEUMATOID ARTHRITIS
     Dosage: 2.5 MG, 2X/DAY
     Route: 048
     Dates: start: 20110126
  4. METHYCOBAL [Concomitant]
     Indication: LUMBAR SPINAL STENOSIS
     Dosage: 500 UG, 2X/DAY
     Route: 048
     Dates: start: 20110820
  5. ROKITAT [Concomitant]
     Indication: GASTRITIS PROPHYLAXIS
     Dosage: 37.5 MG, 2X/DAY
     Route: 048
     Dates: start: 20110820, end: 20120626
  6. ONE-ALPHA [Concomitant]
     Indication: OSTEOPOROSIS
     Dosage: 1.0 UG, 1X/DAY
     Route: 048
     Dates: start: 20090711, end: 20120626
  7. SIMVASTATIN [Concomitant]
     Indication: DYSLIPIDAEMIA
     Dosage: 5 MG, 1X/DAY
     Route: 048
     Dates: start: 20110419, end: 20120626
  8. EXFORGE [Concomitant]
     Indication: HYPERTENSION
     Dosage: 1 DF, 1X/DAY
     Route: 048
     Dates: start: 20101228

REACTIONS (1)
  - Cerebral thrombosis [Recovered/Resolved]
